FAERS Safety Report 6165811-3 (Version None)
Quarter: 2009Q2

REPORT INFORMATION
  Report Type: 
  Country: None (occurrence: None)
  Receive Date: 20090422
  Receipt Date: 20090414
  Transmission Date: 20091009
  Serious: Yes (Other)
  Sender: FDA-Public Use
  Company Number: GXKR2009DE04584

PATIENT
  Sex: Male

DRUGS (4)
  1. METOHEXAL SUCC (NGX) (METOPROLOL) EXTENDED RELEASE TABLET, 47.5MG [Suspect]
     Dosage: 0.5 DF, QD, ORAL
     Route: 048
  2. RESTEX (BENSERAZIDE HYDROCHLORIDE, LEVODOPA) TABLET, 25/100MG [Suspect]
     Dosage: 0.5 DF EVERY 3 DAYS, ORAL; 0.5 DF, PRN
     Route: 048
     Dates: start: 20071201, end: 20080101
  3. RESTEX (BENSERAZIDE HYDROCHLORIDE, LEVODOPA) TABLET, 25/100MG [Suspect]
     Dosage: 0.5 DF EVERY 3 DAYS, ORAL; 0.5 DF, PRN
     Route: 048
     Dates: start: 20080101, end: 20090321
  4. EPROSARTAN MESILATE (EPROSARTAN MESILATE) [Concomitant]

REACTIONS (2)
  - DRUG INTERACTION [None]
  - THROMBOCYTOPENIA [None]
